FAERS Safety Report 9184554 (Version 1)
Quarter: 2012Q4

REPORT INFORMATION
  Report Type: 
  Country: US (occurrence: US)
  Receive Date: 20121101
  Receipt Date: 20121101
  Transmission Date: 20130627
  Serious: No
  Sender: FDA-Public Use
  Company Number: US-PFIZER INC-2012271250

PATIENT

DRUGS (2)
  1. VFEND [Suspect]
     Dosage: UNK
  2. CIMETIDINE [Suspect]
     Dosage: UNK
     Route: 048

REACTIONS (1)
  - Drug level decreased [Unknown]
